FAERS Safety Report 7694241 (Version 4)
Quarter: 2014Q2

REPORT INFORMATION
  Report Type: Report from Study
  Country: US (occurrence: US)
  Receive Date: 20101206
  Receipt Date: 20140610
  Transmission Date: 20141212
  Serious: Yes (Hospitalization)
  Sender: FDA-Public Use
  Company Number: PHHO2010US11531

PATIENT
  Age: 62 Year
  Sex: Female

DRUGS (3)
  1. QTI571 [Suspect]
     Indication: PULMONARY ARTERIAL HYPERTENSION
     Dosage: CODE NOT BROKEN
     Route: 048
     Dates: start: 20100722
  2. LOVENOX [Suspect]
  3. COUMADIN [Concomitant]

REACTIONS (5)
  - Abdominal wall haematoma [Recovered/Resolved]
  - Atrial flutter [Recovered/Resolved]
  - Pneumothorax [Recovered/Resolved]
  - Chest pain [Recovered/Resolved]
  - Pleural effusion [Recovered/Resolved]
